FAERS Safety Report 25052027 (Version 1)
Quarter: 2025Q1

REPORT INFORMATION
  Report Type: Spontaneous
  Country: US (occurrence: None)
  Receive Date: 20250305
  Receipt Date: 20250305
  Transmission Date: 20250409
  Serious: No
  Sender: FDA-CTU
  Company Number: None

PATIENT

DRUGS (1)
  1. ROBAXIN [Suspect]
     Active Substance: METHOCARBAMOL

REACTIONS (6)
  - Drug ineffective [None]
  - Pain [None]
  - Adverse drug reaction [None]
  - Nausea [None]
  - Vomiting [None]
  - Haemoptysis [None]
